FAERS Safety Report 5737289-2 (Version None)
Quarter: 2008Q2

REPORT INFORMATION
  Report Type: 
  Country: None (occurrence: None)
  Receive Date: 20080512
  Receipt Date: 20080512
  Transmission Date: 20081010
  Serious: Yes (Other)
  Sender: FDA-Public Use
  Company Number: None

PATIENT
  Sex: Female
  Weight: 88.905 kg

DRUGS (2)
  1. DIGITEK 0.25MG BERTEK [Suspect]
     Indication: CARDIAC FAILURE
     Dosage: 0.25 1 TABLET PER DAY PO
     Route: 048
     Dates: start: 20000920, end: 20080220
  2. DIGITEK 0.125MG BERTEK [Suspect]
     Indication: CARDIAC FAILURE
     Dosage: 0.125 1 TABLET PER DAY PO
     Route: 048
     Dates: start: 20080220, end: 20080509

REACTIONS (2)
  - PHARMACEUTICAL PRODUCT COMPLAINT [None]
  - THERAPEUTIC AGENT TOXICITY [None]
